FAERS Safety Report 25239643 (Version 1)
Quarter: 2025Q2

REPORT INFORMATION
  Report Type: Spontaneous
  Country: US (occurrence: US)
  Receive Date: 20250425
  Receipt Date: 20250425
  Transmission Date: 20250716
  Serious: Yes (Hospitalization)
  Sender: MYLAN
  Company Number: US-MYLANLABS-2025M1035400

PATIENT
  Age: 54 Year
  Sex: Male

DRUGS (28)
  1. MESALAMINE [Suspect]
     Active Substance: MESALAMINE
     Indication: Colitis ulcerative
  2. MESALAMINE [Suspect]
     Active Substance: MESALAMINE
     Route: 065
  3. MESALAMINE [Suspect]
     Active Substance: MESALAMINE
     Route: 065
  4. MESALAMINE [Suspect]
     Active Substance: MESALAMINE
  5. BUDESONIDE [Suspect]
     Active Substance: BUDESONIDE
     Indication: Colitis ulcerative
  6. BUDESONIDE [Suspect]
     Active Substance: BUDESONIDE
     Indication: SAPHO syndrome
     Route: 048
  7. BUDESONIDE [Suspect]
     Active Substance: BUDESONIDE
     Route: 048
  8. BUDESONIDE [Suspect]
     Active Substance: BUDESONIDE
  9. BUDESONIDE [Suspect]
     Active Substance: BUDESONIDE
     Indication: Colitis ulcerative
  10. BUDESONIDE [Suspect]
     Active Substance: BUDESONIDE
     Indication: SAPHO syndrome
     Route: 054
  11. BUDESONIDE [Suspect]
     Active Substance: BUDESONIDE
     Route: 054
  12. BUDESONIDE [Suspect]
     Active Substance: BUDESONIDE
  13. METHOTREXATE [Suspect]
     Active Substance: METHOTREXATE
     Indication: Colitis ulcerative
  14. METHOTREXATE [Suspect]
     Active Substance: METHOTREXATE
     Indication: SAPHO syndrome
     Route: 065
  15. METHOTREXATE [Suspect]
     Active Substance: METHOTREXATE
     Route: 065
  16. METHOTREXATE [Suspect]
     Active Substance: METHOTREXATE
  17. INFLIXIMAB [Suspect]
     Active Substance: INFLIXIMAB
     Indication: Colitis ulcerative
  18. INFLIXIMAB [Suspect]
     Active Substance: INFLIXIMAB
     Indication: SAPHO syndrome
     Route: 065
  19. INFLIXIMAB [Suspect]
     Active Substance: INFLIXIMAB
     Route: 065
  20. INFLIXIMAB [Suspect]
     Active Substance: INFLIXIMAB
  21. ERTAPENEM [Suspect]
     Active Substance: ERTAPENEM
     Indication: Antibiotic therapy
  22. ERTAPENEM [Suspect]
     Active Substance: ERTAPENEM
     Route: 065
  23. ERTAPENEM [Suspect]
     Active Substance: ERTAPENEM
     Route: 065
  24. ERTAPENEM [Suspect]
     Active Substance: ERTAPENEM
  25. USTEKINUMAB [Suspect]
     Active Substance: USTEKINUMAB
     Indication: Colitis ulcerative
  26. USTEKINUMAB [Suspect]
     Active Substance: USTEKINUMAB
     Indication: SAPHO syndrome
     Route: 065
  27. USTEKINUMAB [Suspect]
     Active Substance: USTEKINUMAB
     Route: 065
  28. USTEKINUMAB [Suspect]
     Active Substance: USTEKINUMAB

REACTIONS (1)
  - Drug ineffective [Unknown]
